FAERS Safety Report 14076220 (Version 2)
Quarter: 2017Q4

REPORT INFORMATION
  Report Type: Spontaneous
  Country: US (occurrence: US)
  Receive Date: 20171010
  Receipt Date: 20171130
  Transmission Date: 20180321
  Serious: Yes (Other)
  Sender: FDA-Public Use
  Company Number: US-TOLMAR, INC.-TOLG20170435

PATIENT
  Age: 71 Year
  Sex: Female

DRUGS (5)
  1. MOBIC [Concomitant]
     Active Substance: MELOXICAM
     Indication: PRODUCT USED FOR UNKNOWN INDICATION
     Dosage: 15 MG
     Route: 065
  2. CORTIZONE 10 [Suspect]
     Active Substance: HYDROCORTISONE
     Indication: VAGINAL INFECTION
     Dosage: UNKNOWN
     Route: 067
     Dates: start: 2017, end: 2017
  3. CLONAZEPAM. [Concomitant]
     Active Substance: CLONAZEPAM
     Indication: PRODUCT USED FOR UNKNOWN INDICATION
     Dosage: 0.5 MG
     Route: 065
  4. METRONIDAZOLE. [Suspect]
     Active Substance: METRONIDAZOLE
     Indication: BACTERIAL VAGINOSIS
     Dosage: 1 APPLICATOR FULL
     Route: 067
     Dates: start: 20170718, end: 20170722
  5. ESTROGEN CREAM (ESTRADIOL) [Suspect]
     Active Substance: ESTRADIOL
     Indication: VAGINAL INFECTION
     Dosage: UNKNOWN
     Route: 061
     Dates: start: 2017, end: 2017

REACTIONS (10)
  - Vulvovaginal mycotic infection [Recovered/Resolved]
  - Vaginal infection [Recovering/Resolving]
  - Blood oestrogen decreased [Unknown]
  - Arrhythmia [Recovered/Resolved]
  - Application site pain [Unknown]
  - Vulvovaginal inflammation [Unknown]
  - Vulvovaginal burning sensation [Unknown]
  - Device issue [Unknown]
  - Dyspnoea [Recovered/Resolved]
  - Vulvovaginal discomfort [Unknown]

NARRATIVE: CASE EVENT DATE: 2017
